FAERS Safety Report 7402027-4 (Version None)
Quarter: 2011Q2

REPORT INFORMATION
  Report Type: 
  Country: None (occurrence: None)
  Receive Date: 20110408
  Receipt Date: 20110325
  Transmission Date: 20111010
  Serious: Yes (Hospitalization, Other)
  Sender: FDA-Public Use
  Company Number: JP-JNJFOC-20101204476

PATIENT
  Sex: Female

DRUGS (25)
  1. PURSENNID [Concomitant]
     Indication: CONSTIPATION
     Route: 048
  2. LECICARBON [Concomitant]
     Indication: CONSTIPATION
     Route: 054
  3. GRANISETRON HCL [Concomitant]
     Indication: PROPHYLAXIS
     Route: 042
  4. DECADRON [Concomitant]
     Route: 048
  5. WHITE PETROLATUM [Concomitant]
     Indication: SINUSITIS
     Route: 061
  6. DOXIL [Suspect]
     Indication: OVARIAN CANCER RECURRENT
     Dosage: CYCLE 2
     Route: 042
  7. DOXIL [Suspect]
     Dosage: CYCLE 3
     Route: 042
  8. MUCOSTA [Concomitant]
     Indication: GASTRITIS
     Route: 048
  9. CELTECT [Concomitant]
     Indication: SINUSITIS
     Route: 048
  10. LOXOPROFEN SODIUM [Concomitant]
     Indication: PRODUCT USED FOR UNKNOWN INDICATION
     Route: 048
  11. DECADRON [Concomitant]
     Indication: PROPHYLAXIS
     Route: 042
  12. LIPIDIL [Suspect]
     Indication: PRODUCT USED FOR UNKNOWN INDICATION
     Route: 048
  13. NEUROVITAN [Concomitant]
     Indication: PROPHYLAXIS
     Route: 048
  14. LOXOPROFEN SODIUM [Concomitant]
     Route: 048
  15. EURAX [Concomitant]
     Indication: SINUSITIS
     Route: 061
  16. ATARAX [Concomitant]
     Indication: PRURITUS
     Route: 048
  17. DOXIL [Suspect]
     Dosage: CYCLE 5
     Route: 042
  18. DOXIL [Suspect]
     Dosage: CYCLE 1
     Route: 042
  19. DERMOVATE [Concomitant]
     Indication: PRURITUS
     Route: 061
  20. ZOFRAN [Concomitant]
     Indication: PRODUCT USED FOR UNKNOWN INDICATION
     Route: 048
  21. HIRUDOID CREAM [Concomitant]
     Indication: PRURITUS
     Route: 061
  22. DOXIL [Suspect]
     Dosage: CYCLE 4
     Route: 042
  23. PREMARIN [Concomitant]
     Indication: MENOPAUSAL SYMPTOMS
     Route: 048
  24. AZUNOL [Concomitant]
     Indication: STOMATITIS
     Route: 049
  25. MYSER [Concomitant]
     Indication: PRURITUS
     Route: 061

REACTIONS (2)
  - PNEUMONIA [None]
  - ASPARTATE AMINOTRANSFERASE INCREASED [None]
